FAERS Safety Report 21903494 (Version 1)
Quarter: 2023Q1

REPORT INFORMATION
  Report Type: Spontaneous
  Country: ES (occurrence: ES)
  Receive Date: 20230124
  Receipt Date: 20230124
  Transmission Date: 20230418
  Serious: Yes (Hospitalization)
  Sender: FDA-Public Use
  Company Number: ES-AEMPS-1315734

PATIENT
  Age: 73 Year
  Sex: Female

DRUGS (4)
  1. ESCITALOPRAM [Suspect]
     Active Substance: ESCITALOPRAM OXALATE
     Indication: Depression
     Dosage: 10 MILLIGRAM
     Route: 048
     Dates: start: 20220728, end: 20220807
  2. LORAZEPAM [Concomitant]
     Active Substance: LORAZEPAM
     Indication: Persistent depressive disorder
     Dosage: 2 MILLIGRAM (C/24 H NOC)
     Route: 048
     Dates: start: 20211117
  3. ACIDO ACETILSALICILICO KERN PHARMA [Concomitant]
     Indication: Cerebrovascular disorder
     Dosage: 100 MILLIGRAM
     Route: 048
     Dates: start: 20121220
  4. TRYPTIZOL [Concomitant]
     Active Substance: AMITRIPTYLINE HYDROCHLORIDE
     Indication: Headache
     Dosage: 10 MILLIGRAM
     Route: 048
     Dates: start: 20220709

REACTIONS (2)
  - Abdominal pain [Recovered/Resolved]
  - Pancreatitis acute [Recovered/Resolved]

NARRATIVE: CASE EVENT DATE: 20220807
